FAERS Safety Report 8117365-X (Version None)
Quarter: 2012Q1

REPORT INFORMATION
  Report Type: 
  Country: None (occurrence: None)
  Receive Date: 20120206
  Receipt Date: 20120126
  Transmission Date: 20120608
  Serious: Yes (Other)
  Sender: FDA-Public Use
  Company Number: US-ASTRAZENECA-2011SE36989

PATIENT
  Age: 657 Month
  Sex: Female
  Weight: 59 kg

DRUGS (5)
  1. LAMACTONE [Concomitant]
  2. VALIUM [Concomitant]
  3. SEROQUEL [Suspect]
     Indication: NERVOUSNESS
     Route: 048
     Dates: start: 20100101
  4. CIPALOPRAM [Concomitant]
  5. SEROQUEL [Suspect]
     Indication: DEPRESSION
     Route: 048
     Dates: start: 20100101

REACTIONS (11)
  - CEREBROVASCULAR ACCIDENT [None]
  - MENTAL DISORDER [None]
  - DEPRESSION [None]
  - AGITATION [None]
  - BRONCHITIS [None]
  - DRUG DOSE OMISSION [None]
  - NIGHTMARE [None]
  - OFF LABEL USE [None]
  - TACHYPHRENIA [None]
  - VAGINAL CANCER [None]
  - THERAPEUTIC RESPONSE UNEXPECTED [None]
